FAERS Safety Report 6677058-2 (Version None)
Quarter: 2010Q2

REPORT INFORMATION
  Report Type: 
  Country: None (occurrence: None)
  Receive Date: 20100412
  Receipt Date: 20100406
  Transmission Date: 20101027
  Serious: Yes (Hospitalization, Other)
  Sender: FDA-Public Use
  Company Number: BE-ABBOTT-10P-013-0634627-00

PATIENT
  Sex: Female
  Weight: 62 kg

DRUGS (5)
  1. HUMIRA [Suspect]
     Indication: CROHN'S DISEASE
     Dates: start: 20100203
  2. EFFEXOR [Concomitant]
     Indication: DEPRESSION
     Dosage: 75 MG DAILY
  3. OMEPRAZOLE [Concomitant]
     Indication: DYSPEPSIA
     Dosage: 20 MG DAILY
  4. ZANIDIP [Concomitant]
     Indication: HYPERTENSION
     Dosage: 10 MG DAILY
  5. TRAZODONE [Concomitant]
     Indication: INSOMNIA
     Dosage: 100 MG DAILY

REACTIONS (2)
  - CHEST PAIN [None]
  - CORONARY ARTERY STENOSIS [None]
